FAERS Safety Report 8480729-9 (Version None)
Quarter: 2012Q2

REPORT INFORMATION
  Report Type: 
  Country: None (occurrence: None)
  Receive Date: 20120626
  Receipt Date: 20120626
  Transmission Date: 20120825
  Serious: Yes (Other)
  Sender: FDA-Public Use
  Company Number: None

PATIENT
  Age: 66 Year
  Sex: Male

DRUGS (2)
  1. ZOLOFT [Suspect]
     Indication: ANXIETY
     Dosage: 100 MG 1 QD ORAL
     Route: 048
     Dates: start: 20120501
  2. ZOLOFT [Suspect]
     Indication: DEPRESSION
     Dosage: 100 MG 1 QD ORAL
     Route: 048
     Dates: start: 20120501

REACTIONS (3)
  - SUICIDAL IDEATION [None]
  - NIGHTMARE [None]
  - PRODUCT SUBSTITUTION ISSUE [None]
